FAERS Safety Report 4780524-8 (Version None)
Quarter: 2005Q3

REPORT INFORMATION
  Report Type: 
  Country: None (occurrence: None)
  Receive Date: 20050926
  Receipt Date: 20050912
  Transmission Date: 20060218
  Serious: Yes (Hospitalization)
  Sender: FDA-Public Use
  Company Number: FEI2005-2371

PATIENT
  Age: 33 Year
  Sex: Female
  Weight: 60.3284 kg

DRUGS (4)
  1. INTRAUTERINE COPPER CONTRACEPTIVE [Suspect]
     Indication: CONTRACEPTION
     Dosage: INTRA-UTERINE
     Route: 015
     Dates: start: 20001228, end: 20050520
  2. ALLERGY MEDICATION UNSPECIFIED (ALLERGY MEDICATION) [Concomitant]
  3. PRENATAL VITAMINS (PRENATAL VITAMINS) (TABLETS) [Concomitant]
  4. REGLAN [Concomitant]

REACTIONS (7)
  - ABORTION SPONTANEOUS [None]
  - CHORIOAMNIONITIS [None]
  - MUSCLE SPASMS [None]
  - NAUSEA [None]
  - PREGNANCY WITH CONTRACEPTIVE DEVICE [None]
  - PYREXIA [None]
  - STILLBIRTH [None]
